FAERS Safety Report 6720224-8 (Version None)
Quarter: 2010Q2

REPORT INFORMATION
  Report Type: 
  Country: None (occurrence: None)
  Receive Date: 20100511
  Receipt Date: 20100504
  Transmission Date: 20101027
  Serious: Yes (Other)
  Sender: FDA-Public Use
  Company Number: CA-SANOFI-AVENTIS-2010SA025889

PATIENT
  Sex: Female

DRUGS (2)
  1. MULTAQ [Suspect]
     Indication: DRUG USE FOR UNKNOWN INDICATION
     Route: 065
  2. MONOCOR [Interacting]
     Indication: DRUG USE FOR UNKNOWN INDICATION

REACTIONS (3)
  - DRUG INTERACTION [None]
  - HEART RATE DECREASED [None]
  - SYNCOPE [None]
